FAERS Safety Report 9471114 (Version 2)
Quarter: 2013Q3

REPORT INFORMATION
  Report Type: Spontaneous
  Country: GB (occurrence: GB)
  Receive Date: 20130822
  Receipt Date: 20130822
  Transmission Date: 20140515
  Serious: Yes (Hospitalization, Other)
  Sender: FDA-Public Use
  Company Number: GB-BAYER-2012-082287

PATIENT
  Age: 39 Year
  Sex: Female

DRUGS (1)
  1. MIRENA [Suspect]
     Dosage: 20 ?G/D, CONT
     Route: 015

REACTIONS (7)
  - Pelvic inflammatory disease [Recovered/Resolved]
  - Tubo-ovarian abscess [Recovered/Resolved]
  - Sepsis [Recovered/Resolved]
  - Hydroureter [Recovered/Resolved]
  - Hydronephrosis [Recovered/Resolved]
  - Postoperative ileus [Recovered/Resolved]
  - Menometrorrhagia [None]
